FAERS Safety Report 12383880 (Version 1)
Quarter: 2016Q2

REPORT INFORMATION
  Report Type: Spontaneous
  Country: GR (occurrence: GR)
  Receive Date: 20160519
  Receipt Date: 20160519
  Transmission Date: 20160815
  Serious: Yes (Hospitalization, Other)
  Sender: FDA-Public Use
  Company Number: GR-BRISTOL-MYERS SQUIBB COMPANY-BMS-2016-038224

PATIENT
  Sex: Male

DRUGS (1)
  1. ELIQUIS [Suspect]
     Active Substance: APIXABAN
     Indication: PRODUCT USED FOR UNKNOWN INDICATION
     Dosage: 2.5 MG, UNK
     Route: 065
     Dates: start: 20160507

REACTIONS (3)
  - Atrial fibrillation [Unknown]
  - Platelet count decreased [Unknown]
  - Oliguria [Unknown]

NARRATIVE: CASE EVENT DATE: 201605
